FAERS Safety Report 24168448 (Version 1)
Quarter: 2024Q3

REPORT INFORMATION
  Report Type: Other
  Country: GB (occurrence: GB)
  Receive Date: 20240802
  Receipt Date: 20240802
  Transmission Date: 20241017
  Serious: Yes (Other)
  Sender: GLENMARK
  Company Number: None

PATIENT

DRUGS (1)
  1. ATOMOXETINE [Suspect]
     Active Substance: ATOMOXETINE HYDROCHLORIDE
     Indication: Attention deficit hyperactivity disorder
     Dosage: UNK, (2 X 25MG ONCE A DAY IN THE MORNING)
     Route: 065
     Dates: end: 20240712

REACTIONS (1)
  - Phobia [Not Recovered/Not Resolved]

NARRATIVE: CASE EVENT DATE: 20240101
